FAERS Safety Report 13109611 (Version 3)
Quarter: 2017Q2

REPORT INFORMATION
  Report Type: Spontaneous
  Country: AU (occurrence: AU)
  Receive Date: 20170112
  Receipt Date: 20170413
  Transmission Date: 20170830
  Serious: Yes (Hospitalization)
  Sender: FDA-Public Use
  Company Number: AU-SA-2017SA005159

PATIENT
  Sex: Male

DRUGS (5)
  1. NOVORAPID [Concomitant]
     Active Substance: INSULIN ASPART
  2. TOUJEO [Suspect]
     Active Substance: INSULIN GLARGINE
     Indication: TYPE 1 DIABETES MELLITUS
     Route: 065
     Dates: start: 20160715, end: 20170115
  3. INSULINE RAPITARD [Suspect]
     Active Substance: INSULIN BEEF/PORK
     Route: 065
  4. SOLOSTAR [Concomitant]
     Active Substance: DEVICE
     Indication: TYPE 1 DIABETES MELLITUS
     Dates: start: 201607, end: 201701
  5. LANTUS [Suspect]
     Active Substance: INSULIN GLARGINE
     Route: 065
     Dates: start: 201701

REACTIONS (3)
  - Blood ketone body increased [Recovered/Resolved]
  - Blood glucose increased [Recovered/Resolved]
  - Hyperglycaemia [Recovered/Resolved]

NARRATIVE: CASE EVENT DATE: 20170103
